FAERS Safety Report 25317143 (Version 1)
Quarter: 2025Q2

REPORT INFORMATION
  Report Type: Spontaneous
  Country: US (occurrence: US)
  Receive Date: 20250515
  Receipt Date: 20250515
  Transmission Date: 20250716
  Serious: Yes (Hospitalization)
  Sender: CHIESI
  Company Number: US-CHIESI-2025CHF03183

PATIENT
  Sex: Male
  Weight: 85.683 kg

DRUGS (1)
  1. MYALEPT [Suspect]
     Active Substance: METRELEPTIN
     Indication: Product used for unknown indication
     Dosage: 2.5 MILLIGRAM, QD
     Route: 058

REACTIONS (2)
  - Ill-defined disorder [Unknown]
  - Product dose omission issue [Unknown]
